FAERS Safety Report 13486171 (Version 2)
Quarter: 2017Q2

REPORT INFORMATION
  Report Type: Spontaneous
  Country: US (occurrence: US)
  Receive Date: 20170426
  Receipt Date: 20170511
  Transmission Date: 20170830
  Serious: Yes (Other)
  Sender: FDA-Public Use
  Company Number: US-BAYER-2017-078569

PATIENT
  Age: 31 Year
  Sex: Female
  Weight: 73.47 kg

DRUGS (1)
  1. MIRENA [Suspect]
     Active Substance: LEVONORGESTREL
     Indication: CONTRACEPTION
     Dosage: 20 MCG/24HR, CONT
     Route: 015
     Dates: start: 20161101

REACTIONS (10)
  - Dizziness [None]
  - Endosalpingiosis [None]
  - Menorrhagia [None]
  - Dysmenorrhoea [None]
  - Hyperhidrosis [None]
  - Abdominal pain lower [None]
  - Embedded device [None]
  - Genital haemorrhage [None]
  - Procedural pain [None]
  - Pelvic pain [None]

NARRATIVE: CASE EVENT DATE: 201611
